FAERS Safety Report 19683088 (Version 3)
Quarter: 2021Q4

REPORT INFORMATION
  Report Type: Spontaneous
  Country: JP (occurrence: JP)
  Receive Date: 20210810
  Receipt Date: 20211025
  Transmission Date: 20220303
  Serious: Yes (Hospitalization, Other)
  Sender: FDA-Public Use
  Company Number: JP-SA-SAC20210809000918

PATIENT
  Age: 12 Year
  Sex: Male

DRUGS (1)
  1. FEXOFENADINE HYDROCHLORIDE\PSEUDOEPHEDRINE HYDROCHLORIDE [Suspect]
     Active Substance: FEXOFENADINE HYDROCHLORIDE\PSEUDOEPHEDRINE HYDROCHLORIDE
     Indication: Seasonal allergy
     Dosage: TABLET
     Route: 048

REACTIONS (4)
  - Acute generalised exanthematous pustulosis [Recovered/Resolved]
  - Erythema [Unknown]
  - Pyrexia [Unknown]
  - Rash erythematous [Unknown]
